FAERS Safety Report 5325024-1 (Version None)
Quarter: 2007Q2

REPORT INFORMATION
  Report Type: 
  Country: None (occurrence: None)
  Receive Date: 20070515
  Receipt Date: 20070329
  Transmission Date: 20071010
  Serious: Yes (Other)
  Sender: FDA-Public Use
  Company Number: PHBS2007BE07932

PATIENT
  Age: 81 Year
  Sex: Female
  Weight: 62 kg

DRUGS (9)
  1. AREDIA [Suspect]
     Indication: OSTEOPOROTIC FRACTURE
     Dates: start: 20070120, end: 20070122
  2. FOSAMAX [Suspect]
     Dosage: 70 MG/DAY
     Dates: start: 20030101, end: 20070101
  3. PROLOPA [Concomitant]
     Dosage: 1 DF, QD
  4. ATACAND [Concomitant]
     Dosage: 8 MG/DAY
  5. ALDACTONE [Concomitant]
     Dosage: 25 MG/DAY
  6. BURINEX [Concomitant]
     Dosage: 1 MG/DAY
  7. SERLAIN [Concomitant]
     Dosage: 50 MG/DAY
  8. ASPIRIN [Concomitant]
  9. CRESTOR [Concomitant]
     Dosage: 10 MG, Q48H

REACTIONS (1)
  - OSTEONECROSIS [None]
